FAERS Safety Report 22053218 (Version 1)
Quarter: 2023Q1

REPORT INFORMATION
  Report Type: Spontaneous
  Country: FR (occurrence: FR)
  Receive Date: 20230302
  Receipt Date: 20230302
  Transmission Date: 20230418
  Serious: Yes (Other)
  Sender: FDA-Public Use
  Company Number: FR-002147023-NVSC2023FR045975

PATIENT

DRUGS (5)
  1. AFINITOR [Suspect]
     Active Substance: EVEROLIMUS
     Indication: Neoplasm
     Dosage: 2.5 MG, QD (DOSE LEVEL: -2 AND -1)
     Route: 065
  2. AFINITOR [Suspect]
     Active Substance: EVEROLIMUS
     Dosage: 5 MG, QD (DOSE LEVEL: 1,2,3,4)
     Route: 065
  3. NEXAVAR [Suspect]
     Active Substance: SORAFENIB
     Indication: Neoplasm
     Dosage: 200 MG, QD (DOSE LEVEL: -2)
     Route: 065
  4. NEXAVAR [Suspect]
     Active Substance: SORAFENIB
     Dosage: 200 MG, BID (DOSE LEVEL: -1)
     Route: 065
  5. NEXAVAR [Suspect]
     Active Substance: SORAFENIB
     Dosage: 200 MG, BID (DOSE LEVEL: 1,2,3,4)
     Route: 065

REACTIONS (1)
  - Haemolytic anaemia [Unknown]
